FAERS Safety Report 9398665 (Version 1)
Quarter: 2013Q3

REPORT INFORMATION
  Report Type: Spontaneous
  Country: AU (occurrence: AU)
  Receive Date: 20130712
  Receipt Date: 20130712
  Transmission Date: 20140515
  Serious: Yes (Other)
  Sender: FDA-Public Use
  Company Number: PHHY2013AU072117

PATIENT
  Age: 88 Year
  Sex: Male

DRUGS (5)
  1. ZOLEDRONATE [Suspect]
     Dosage: UNK UKN, UNK
  2. MIRTAZAPINE [Suspect]
     Dosage: UNK UKN, UNK
  3. TEMAZEPAM [Suspect]
     Dosage: UNK UKN, UNK
  4. OXAZEPAM [Suspect]
  5. CALCIUM CITRATE [Suspect]
     Dosage: UNK UKN, UNK

REACTIONS (13)
  - Hypophagia [Unknown]
  - Lethargy [Unknown]
  - Mobility decreased [Unknown]
  - Photophobia [Unknown]
  - Renal impairment [Unknown]
  - Pain [Unknown]
  - Hyperhidrosis [Unknown]
  - Uveitis [Unknown]
  - Influenza like illness [Unknown]
  - Dizziness [Unknown]
  - Nausea [Unknown]
  - Pyrexia [Unknown]
  - Headache [Unknown]
